FAERS Safety Report 16018655 (Version 1)
Quarter: 2019Q1

REPORT INFORMATION
  Report Type: Spontaneous
  Country: US (occurrence: US)
  Receive Date: 20190228
  Receipt Date: 20190228
  Transmission Date: 20190418
  Serious: No
  Sender: FDA-Public Use
  Company Number: US-VALIDUS PHARMACEUTICALS LLC-US-2018VAL000786

PATIENT

DRUGS (22)
  1. REMODULIN [Suspect]
     Active Substance: TREPROSTINIL
     Indication: PRODUCT USED FOR UNKNOWN INDICATION
     Dosage: 0.0121 ?G/KG
     Route: 058
     Dates: start: 20180503, end: 20180510
  2. ACETAMINOPHEN. [Concomitant]
     Active Substance: ACETAMINOPHEN
     Indication: PRODUCT USED FOR UNKNOWN INDICATION
     Dosage: UNK
     Dates: start: 20180503, end: 20180506
  3. FENTANYL. [Concomitant]
     Active Substance: FENTANYL
     Indication: PRODUCT USED FOR UNKNOWN INDICATION
     Dosage: UNK
     Dates: start: 20180503, end: 20180503
  4. KETAMINE [Concomitant]
     Active Substance: KETAMINE
     Indication: PRODUCT USED FOR UNKNOWN INDICATION
     Dosage: UNK
     Dates: start: 20180503, end: 20180503
  5. CALCIUM CHLORIDE. [Concomitant]
     Active Substance: CALCIUM CHLORIDE
     Indication: PRODUCT USED FOR UNKNOWN INDICATION
     Dosage: UNK
     Dates: start: 20180503, end: 20180503
  6. ONDANSETRON [Concomitant]
     Active Substance: ONDANSETRON
     Indication: PRODUCT USED FOR UNKNOWN INDICATION
     Dosage: 2.76 MG, QD
     Dates: start: 20180504, end: 20180504
  7. FUROSEMIDE. [Suspect]
     Active Substance: FUROSEMIDE
     Indication: FLUID RETENTION
     Dosage: 40 MG, QD
     Dates: start: 20180504
  8. DEXMEDETOMIDINE. [Concomitant]
     Active Substance: DEXMEDETOMIDINE
     Indication: PRODUCT USED FOR UNKNOWN INDICATION
     Dosage: UNK
     Dates: start: 20180503, end: 20180504
  9. DOPAMINE [Concomitant]
     Active Substance: DOPAMINE\DOPAMINE HYDROCHLORIDE
     Indication: PRODUCT USED FOR UNKNOWN INDICATION
     Dosage: UNK
     Dates: start: 20180503, end: 20180503
  10. PROTAMINE [Concomitant]
     Active Substance: PROTAMINE
     Indication: PRODUCT USED FOR UNKNOWN INDICATION
     Dosage: UNK
     Dates: start: 20180503, end: 20180503
  11. ALBUMIN (HUMAN) [Concomitant]
     Active Substance: ALBUMIN HUMAN
     Indication: PRODUCT USED FOR UNKNOWN INDICATION
     Dosage: UNK
     Dates: start: 20180503, end: 20180503
  12. SCOPOLAMINE                        /00008701/ [Concomitant]
     Active Substance: SCOPOLAMINE
     Indication: PRODUCT USED FOR UNKNOWN INDICATION
     Dosage: 0.33 MG, QD
     Dates: start: 20180505, end: 20180507
  13. KETOROLAC [Suspect]
     Active Substance: KETOROLAC\KETOROLAC TROMETHAMINE
     Indication: ANALGESIC THERAPY
     Dosage: 28 MG, QD
     Dates: start: 20180504, end: 20180505
  14. MORPHINE [Suspect]
     Active Substance: MORPHINE
     Indication: PAIN
     Dosage: 21 MG, QD
     Dates: start: 20180503, end: 20180503
  15. MILRINONE [Concomitant]
     Active Substance: MILRINONE
     Indication: PRODUCT USED FOR UNKNOWN INDICATION
     Dosage: UNK
     Dates: start: 20180503, end: 20180504
  16. HEPARIN [Concomitant]
     Active Substance: HEPARIN SODIUM
     Indication: PRODUCT USED FOR UNKNOWN INDICATION
     Dosage: UNK
     Dates: start: 20180503, end: 20180503
  17. SODIUM BICARBONATE. [Concomitant]
     Active Substance: SODIUM BICARBONATE
     Indication: PRODUCT USED FOR UNKNOWN INDICATION
     Dosage: UNK
     Dates: start: 20180503, end: 20180503
  18. ASPIRIN                            /00002701/ [Concomitant]
     Active Substance: ASPIRIN
     Indication: PRODUCT USED FOR UNKNOWN INDICATION
     Dosage: UNK
     Dates: start: 20180503, end: 20180503
  19. CEFAZOLIN [Concomitant]
     Active Substance: CEFAZOLIN
     Indication: PRODUCT USED FOR UNKNOWN INDICATION
     Dosage: UNK
     Dates: start: 20180503, end: 20180504
  20. ROCURONIUM [Concomitant]
     Active Substance: ROCURONIUM BROMIDE
     Indication: PRODUCT USED FOR UNKNOWN INDICATION
     Dosage: UNK
     Dates: start: 20180503, end: 20180503
  21. METHADONE [Concomitant]
     Active Substance: METHADONE HYDROCHLORIDE
     Indication: PRODUCT USED FOR UNKNOWN INDICATION
     Dosage: UNK
     Dates: start: 20180503, end: 20180503
  22. ROPIVACAINE. [Suspect]
     Active Substance: ROPIVACAINE HYDROCHLORIDE
     Indication: NERVE BLOCK
     Dosage: 6 ML, QD
     Dates: start: 20180503, end: 20180503

REACTIONS (2)
  - Vomiting [Recovered/Resolved]
  - Nausea [Recovered/Resolved]

NARRATIVE: CASE EVENT DATE: 20180504
